FAERS Safety Report 8036721 (Version 3)
Quarter: 2016Q1

REPORT INFORMATION
  Report Type: Spontaneous
  Country: JP (occurrence: JP)
  Receive Date: 20110715
  Receipt Date: 20160121
  Transmission Date: 20160526
  Serious: Yes (Life-Threatening, Other)
  Sender: FDA-Public Use
  Company Number: JP-BRISTOL-MYERS SQUIBB COMPANY-15893811

PATIENT
  Age: 22 Year
  Sex: Female

DRUGS (1)
  1. BARACLUDE [Suspect]
     Active Substance: ENTECAVIR
     Indication: ACUTE HEPATITIS B
     Dosage: UNK
     Route: 048
     Dates: start: 2010

REACTIONS (7)
  - Cardiac failure [Recovered/Resolved]
  - Cardiomyopathy acute [Unknown]
  - Maternal exposure during pregnancy [Recovered/Resolved]
  - Hepatic encephalopathy [Unknown]
  - Acute hepatic failure [Unknown]
  - Coma hepatic [Unknown]
  - Foetal death [Unknown]

NARRATIVE: CASE EVENT DATE: 2010
